FAERS Safety Report 7925368-0 (Version None)
Quarter: 2011Q4

REPORT INFORMATION
  Report Type: 
  Country: None (occurrence: None)
  Receive Date: 20111118
  Receipt Date: 20110405
  Transmission Date: 20120403
  Serious: No
  Sender: FDA-Public Use
  Company Number: US-AMGEN-KDL442767

PATIENT
  Age: 60 Year
  Sex: Male
  Weight: 111.11 kg

DRUGS (12)
  1. MYCOPHENOLATE MOFETIL [Concomitant]
     Dosage: 500 MG, UNK
  2. PREDNISONE TAB [Concomitant]
     Dosage: 5 MG, UNK
  3. METHIMAZOLE [Concomitant]
     Dosage: 5 MG, UNK
  4. DULOXETIME HYDROCHLORIDE [Concomitant]
     Dosage: 60 MG, UNK
  5. DOXEPIN HYDROCHLORIDE [Concomitant]
     Dosage: 100 MG, UNK
  6. ATENOLOL [Concomitant]
     Dosage: 50 MG, UNK
  7. LOVASTATIN [Concomitant]
     Dosage: 40 MG, UNK
  8. CLOPIDOGREL BISULFATE [Concomitant]
     Dosage: 75 MG, UNK
  9. ENBREL [Suspect]
     Indication: PRODUCT USED FOR UNKNOWN INDICATION
     Dosage: 50 MG, QWK
     Route: 058
  10. FUROSEMIDE [Concomitant]
     Dosage: 20 MG, UNK
  11. PREGABALIN [Concomitant]
     Dosage: 75 MG, UNK
  12. LISINOPRIL [Concomitant]
     Dosage: 10 MG, UNK

REACTIONS (3)
  - NAUSEA [None]
  - INFLUENZA LIKE ILLNESS [None]
  - MALAISE [None]
